FAERS Safety Report 18666136 (Version 1)
Quarter: 2020Q4

REPORT INFORMATION
  Report Type: Spontaneous
  Country: DE (occurrence: DE)
  Receive Date: 20201226
  Receipt Date: 20201226
  Transmission Date: 20210114
  Serious: Yes (Hospitalization)
  Sender: FDA-Public Use
  Company Number: DE-TEVA-2020-DE-1860802

PATIENT
  Age: 50 Year
  Sex: Female

DRUGS (3)
  1. BACLOFEN. [Suspect]
     Active Substance: BACLOFEN
     Dosage: 10 MILLIGRAM DAILY; 10 MG, 0.5-0-0.5-0
  2. IBUPROFEN. [Concomitant]
     Active Substance: IBUPROFEN
     Dosage: REQUIREMENT
  3. COLECALCIFEROL (VITAMIN D) [Suspect]
     Active Substance: CHOLECALCIFEROL
     Dosage: 450 IU (INTERNATIONAL UNIT) DAILY; 1-1-1-0

REACTIONS (4)
  - Muscle spasms [Unknown]
  - General physical health deterioration [Unknown]
  - Vomiting [Unknown]
  - Accidental overdose [Unknown]

NARRATIVE: CASE EVENT DATE: 2020
